FAERS Safety Report 21480794 (Version 1)
Quarter: 2022Q4

REPORT INFORMATION
  Report Type: Spontaneous
  Country: NL (occurrence: NL)
  Receive Date: 20221019
  Receipt Date: 20221019
  Transmission Date: 20230113
  Serious: Yes (Death, Other)
  Sender: FDA-Public Use
  Company Number: NL-FERRINGPH-2022FE05510

PATIENT

DRUGS (1)
  1. GONADORELIN [Suspect]
     Active Substance: GONADORELIN
     Indication: Infertility
     Dosage: 10 MCG PER 90 MIN
     Route: 064

REACTIONS (1)
  - Stillbirth [Fatal]
